FAERS Safety Report 20475451 (Version 2)
Quarter: 2022Q2

REPORT INFORMATION
  Report Type: Report from Study
  Country: DE (occurrence: DE)
  Receive Date: 20220215
  Receipt Date: 20220503
  Transmission Date: 20220721
  Serious: Yes (Other)
  Sender: FDA-Public Use
  Company Number: DE-NOVARTISPH-NVSC2022DE033069

PATIENT
  Age: 83 Year
  Sex: Male
  Weight: 70 kg

DRUGS (4)
  1. CAPMATINIB [Suspect]
     Active Substance: CAPMATINIB
     Indication: Non-small cell lung cancer metastatic
     Dosage: 200 MG (2-0-2)
     Route: 065
     Dates: start: 20211025, end: 20211231
  2. CAPMATINIB [Suspect]
     Active Substance: CAPMATINIB
     Dosage: 150 MG (2-0-2)
     Route: 065
     Dates: start: 20220110, end: 20220201
  3. CAPMATINIB [Suspect]
     Active Substance: CAPMATINIB
     Dosage: 200 MG (1-0-1)
     Route: 065
     Dates: start: 20220206, end: 20220302
  4. CAPMATINIB [Suspect]
     Active Substance: CAPMATINIB
     Dosage: 200 MG (1-0-1)
     Route: 065
     Dates: start: 20220323

REACTIONS (1)
  - Oedema peripheral [Recovered/Resolved with Sequelae]

NARRATIVE: CASE EVENT DATE: 20220101
